FAERS Safety Report 16341848 (Version 1)
Quarter: 2019Q2

REPORT INFORMATION
  Report Type: Spontaneous
  Country: US (occurrence: US)
  Receive Date: 20190521
  Receipt Date: 20190521
  Transmission Date: 20190711
  Serious: Yes (Disabling)
  Sender: FDA-Public Use
  Company Number: None

PATIENT
  Age: 38 Year
  Sex: Female
  Weight: 144 kg

DRUGS (21)
  1. AIMOVIG [Suspect]
     Active Substance: ERENUMAB-AOOE
     Indication: MIGRAINE
     Dosage: ?          QUANTITY:2 INJECTION(S);OTHER FREQUENCY:MONTHLY;?
     Route: 058
     Dates: start: 20181023, end: 20190115
  2. DULERA [Concomitant]
     Active Substance: FORMOTEROL FUMARATE DIHYDRATE\MOMETASONE FUROATE
  3. MECLIZINE [Concomitant]
     Active Substance: MECLIZINE HYDROCHLORIDE
  4. TRAMADOL. [Concomitant]
     Active Substance: TRAMADOL
  5. MELATONIN [Concomitant]
     Active Substance: MELATONIN
  6. LEXAPRO [Concomitant]
     Active Substance: ESCITALOPRAM OXALATE
  7. MAGNESIUM LAATE [Concomitant]
  8. RHINOCORT [Concomitant]
     Active Substance: BUDESONIDE
  9. PROAIR HFA [Concomitant]
     Active Substance: ALBUTEROL SULFATE
  10. ZOFRAN [Concomitant]
     Active Substance: ONDANSETRON HYDROCHLORIDE
  11. XYZAL [Concomitant]
     Active Substance: LEVOCETIRIZINE DIHYDROCHLORIDE
  12. ATRARAX [Concomitant]
  13. CAMBIA [Concomitant]
     Active Substance: DICLOFENAC POTASSIUM
  14. VERAPAMIL [Concomitant]
     Active Substance: VERAPAMIL HYDROCHLORIDE
  15. VITAMIN D3 [Concomitant]
     Active Substance: CHOLECALCIFEROL
  16. METHYLFOLATE [Concomitant]
     Active Substance: LEVOMEFOLATE CALCIUM
  17. SULFA [Concomitant]
     Active Substance: UNSPECIFIED INGREDIENT
  18. PROTRIPTYLINE [Concomitant]
     Active Substance: PROTRIPTYLINE
  19. VARIOUS TREE/WEED/GRASS POLLEN [Concomitant]
  20. ALBUTERL [Concomitant]
  21. B12 METHYLCOBAFARMIN [Concomitant]

REACTIONS (12)
  - Constipation [None]
  - Arthralgia [None]
  - Insomnia [None]
  - Depression [None]
  - Anxiety [None]
  - Asthma [None]
  - Alopecia [None]
  - Diarrhoea [None]
  - Fatigue [None]
  - Muscle spasms [None]
  - Abdominal pain [None]
  - Nausea [None]

NARRATIVE: CASE EVENT DATE: 20181031
